FAERS Safety Report 4556949-2 (Version None)
Quarter: 2005Q1

REPORT INFORMATION
  Report Type: 
  Country: None (occurrence: None)
  Receive Date: 20050118
  Receipt Date: 20050110
  Transmission Date: 20050727
  Serious: Yes (Congenital Anomaly)
  Sender: FDA-Public Use
  Company Number: 200510027BNE

PATIENT
  Sex: Male

DRUGS (8)
  1. ASPIRIN [Suspect]
     Dosage: TRANSPLACENTAL
     Route: 064
  2. SPIRONOLACTONE [Suspect]
     Dosage: TRANSPLACENTAL
     Route: 064
     Dates: start: 19790101
  3. PENICILLAMINE [Suspect]
     Dosage: TRANSPLACENTAL
     Route: 064
  4. FRUSEMIDE [Suspect]
     Dosage: TRANSPLACENTAL
     Route: 064
  5. DEXAMETHASONE [Suspect]
     Dosage: TRANSPLACENTAL
     Route: 064
  6. POTASSIUM CHLORIDE [Suspect]
     Dosage: TRANSPLACENTAL
     Route: 064
  7. ACETAMINOPHEN [Suspect]
     Dosage: TRANSPLACENTAL
     Route: 064
  8. FERROGRAD C [Suspect]
     Dosage: TRANSPLACENTAL
     Route: 064

REACTIONS (4)
  - ADRENOGENITAL SYNDROME [None]
  - CONGENITAL ANOMALY [None]
  - CRYPTORCHISM [None]
  - DRUG EXPOSURE DURING PREGNANCY [None]
